FAERS Safety Report 7611024-5 (Version None)
Quarter: 2011Q3

REPORT INFORMATION
  Report Type: 
  Country: None (occurrence: None)
  Receive Date: 20110715
  Receipt Date: 20110707
  Transmission Date: 20111222
  Serious: Yes (Hospitalization)
  Sender: FDA-Public Use
  Company Number: FR-JNJFOC-20110703680

PATIENT
  Sex: Female

DRUGS (17)
  1. ASPIRIN [Concomitant]
     Route: 065
  2. CALCIUM CARBONATE [Concomitant]
     Route: 065
  3. GALANTAMINE HYDROBROMIDE [Concomitant]
     Route: 065
  4. CORDARONE [Concomitant]
     Route: 065
  5. ALFUZOSIN HCL [Concomitant]
     Route: 065
  6. ACETAMINOPHEN [Concomitant]
     Route: 065
  7. NEXIUM [Concomitant]
     Route: 065
  8. LEVOTHYROXINE SODIUM [Concomitant]
     Route: 065
  9. ATORVASTATIN CALCIUM [Concomitant]
     Route: 065
  10. FERROUS SULFATE TAB [Concomitant]
     Route: 065
  11. DURAGESIC-100 [Suspect]
     Indication: PAIN
     Route: 062
     Dates: end: 20110211
  12. AMLODIPINE BESYLATE [Concomitant]
     Route: 065
  13. ALLOPURINOL [Concomitant]
     Route: 065
  14. ATHYMIL [Concomitant]
     Route: 065
  15. LASIX [Concomitant]
     Route: 065
  16. LAMALINE [Suspect]
     Indication: PRODUCT USED FOR UNKNOWN INDICATION
     Route: 048
     Dates: end: 20110211
  17. TRANXENE [Suspect]
     Indication: PRODUCT USED FOR UNKNOWN INDICATION
     Route: 048
     Dates: end: 20110211

REACTIONS (3)
  - SOMNOLENCE [None]
  - DISORIENTATION [None]
  - AGGRESSION [None]
